FAERS Safety Report 11119035 (Version 1)
Quarter: 2015Q2

REPORT INFORMATION
  Report Type: Spontaneous
  Country: US (occurrence: None)
  Receive Date: 20150515
  Receipt Date: 20150515
  Transmission Date: 20150821
  Serious: Yes (Other)
  Sender: FDA-Public Use
  Company Number: None

PATIENT
  Age: 17 Year
  Sex: Male

DRUGS (1)
  1. DEPAKOTE ER [Suspect]
     Active Substance: DIVALPROEX SODIUM
     Indication: BALTIC MYOCLONIC EPILEPSY
     Dosage: III QD PO
     Route: 048
     Dates: start: 20040826

REACTIONS (2)
  - Hallucination [None]
  - Product substitution issue [None]

NARRATIVE: CASE EVENT DATE: 20090526
